FAERS Safety Report 23989959 (Version 1)
Quarter: 2024Q2

REPORT INFORMATION
  Report Type: Spontaneous
  Country: DE (occurrence: DE)
  Receive Date: 20240619
  Receipt Date: 20240619
  Transmission Date: 20240716
  Serious: Yes (Hospitalization)
  Sender: FDA-Public Use
  Company Number: DE-ROCHE-2897341

PATIENT
  Age: 60 Year
  Sex: Female
  Weight: 80.7 kg

DRUGS (32)
  1. PEMETREXED [Suspect]
     Active Substance: PEMETREXED
     Indication: Non-small cell lung cancer metastatic
     Dosage: 887.5 MG
     Route: 042
     Dates: start: 20210802
  2. CARBOPLATIN [Suspect]
     Active Substance: CARBOPLATIN
     Indication: Non-small cell lung cancer metastatic
     Dosage: 390 MG, EVERY 3 WEEKS
     Route: 042
     Dates: start: 20210802
  3. DULOXETINE [Concomitant]
     Active Substance: DULOXETINE
     Indication: Depression
     Dosage: 60 MG, 1X/DAY
     Dates: start: 20210922
  4. DULOXETINE [Concomitant]
     Active Substance: DULOXETINE
     Dosage: 30 MG, 1X/DAY
     Dates: start: 20210826, end: 20210831
  5. TORSEMIDE [Concomitant]
     Active Substance: TORSEMIDE
     Indication: Fluid retention
     Dosage: 10 MG, 1X/DAY
     Dates: start: 20210920
  6. KALINOR-RETARD [Concomitant]
     Indication: Hypokalaemia
     Dosage: FREQ:.5 D;
     Dates: start: 20210828, end: 20210828
  7. KALINOR-RETARD [Concomitant]
     Dosage: FREQ:.33 D;
     Dates: start: 20210901, end: 20210911
  8. KALINOR-RETARD [Concomitant]
     Dosage: FREQ:.33 D;
     Dates: start: 20210827, end: 20210828
  9. DEXAMETHASONE [Concomitant]
     Active Substance: DEXAMETHASONE
     Dosage: 8 MG
     Dates: start: 20210802, end: 20210802
  10. FOLIC ACID [Concomitant]
     Active Substance: FOLIC ACID
     Indication: Anaemia
     Dosage: 0.4 MG, 1X/DAY
     Dates: start: 20210726, end: 20210831
  11. FOLIC ACID [Concomitant]
     Active Substance: FOLIC ACID
     Indication: Prophylaxis
     Dosage: 5 MG, 1X/DAY
     Dates: start: 20210827, end: 20210921
  12. TIRAGOLUMAB [Concomitant]
     Active Substance: TIRAGOLUMAB
     Indication: Non-small cell lung cancer metastatic
     Dosage: DATE OF MOST RECENT DOSE OF BLINDED TIRAGOLUMAB PRIOR TO AE/SAE ONSET: 02/AUG/2021.
     Dates: start: 20210802
  13. ZOPICLONE [Concomitant]
     Active Substance: ZOPICLONE
     Indication: Restlessness
     Dosage: 7.5 MG, 1X/DAY
     Dates: end: 20210826
  14. PEMBROLIZUMAB [Concomitant]
     Active Substance: PEMBROLIZUMAB
     Indication: Non-small cell lung cancer metastatic
     Dosage: DATE OF MOST RECENT DOSE OF BLINDED PEMBROLIZUMAB PRIOR TO AE/SAE ONSET: 02/AUG/2021.
     Dates: start: 20210802
  15. POTASSIUM CARBONATE\POTASSIUM CITRATE [Concomitant]
     Active Substance: POTASSIUM CARBONATE\POTASSIUM CITRATE
     Indication: Hypokalaemia
     Dosage: FREQ:.5 D;
     Dates: start: 20210828, end: 20210828
  16. POTASSIUM CARBONATE\POTASSIUM CITRATE [Concomitant]
     Active Substance: POTASSIUM CARBONATE\POTASSIUM CITRATE
     Dosage: FREQ:.33 D;
     Dates: start: 20210831, end: 20210831
  17. POTASSIUM CARBONATE\POTASSIUM CITRATE [Concomitant]
     Active Substance: POTASSIUM CARBONATE\POTASSIUM CITRATE
     Dosage: FREQ:.33 D;
     Dates: start: 20210904, end: 20210904
  18. PANTOPRAZOLE [Concomitant]
     Active Substance: PANTOPRAZOLE
     Dosage: 40 MG, 1X/DAY
  19. ALBUMIN HUMAN [Concomitant]
     Active Substance: ALBUMIN HUMAN
     Indication: Anaemia
     Dosage: FREQ:.5 D;
     Dates: start: 20210829, end: 20210829
  20. ENOXAPARIN SODIUM [Concomitant]
     Active Substance: ENOXAPARIN SODIUM
     Indication: Thrombosis
     Dosage: 0.2 MG, 1X/DAY
     Dates: end: 20210906
  21. ENOXAPARIN SODIUM [Concomitant]
     Active Substance: ENOXAPARIN SODIUM
     Indication: Embolism
     Dosage: FREQ:.5 D;
     Dates: end: 20210905
  22. MIRTAZAPINE [Concomitant]
     Active Substance: MIRTAZAPINE
     Indication: Depression
     Dosage: FREQ:.5 D;
  23. PERENTEROL [Concomitant]
     Active Substance: SACCHAROMYCES CEREVISIAE
     Dosage: FREQ:.5 D;
  24. FOLIC ACID [Concomitant]
     Active Substance: FOLIC ACID
     Dosage: UNK
     Dates: start: 20210827, end: 20210827
  25. AKYNZEO (NETUPITANT\PALONOSETRON) [Concomitant]
     Active Substance: NETUPITANT\PALONOSETRON
     Dosage: 300 MG
     Dates: start: 20210802, end: 20210802
  26. TAVOR (LORAZEPAM) [Concomitant]
     Active Substance: LORAZEPAM
     Indication: Prophylaxis
     Dosage: 1 MG
     Dates: start: 20210915, end: 20210915
  27. TAVOR (LORAZEPAM) [Concomitant]
     Active Substance: LORAZEPAM
     Dosage: 1 MG
     Dates: start: 20210824, end: 20210824
  28. MCP [Concomitant]
     Active Substance: METOCLOPRAMIDE HYDROCHLORIDE
     Dosage: FREQ:.5 D;
  29. PIPAMPERONE HYDROCHLORIDE [Concomitant]
     Active Substance: PIPAMPERONE HYDROCHLORIDE
     Indication: Restlessness
     Dosage: 20 MG, 1X/DAY
     Dates: start: 20210826, end: 20210921
  30. PIPAMPERONE HYDROCHLORIDE [Concomitant]
     Active Substance: PIPAMPERONE HYDROCHLORIDE
     Dosage: 40 MG, 1X/DAY
     Dates: end: 20210827
  31. ATEZOLIZUMAB [Concomitant]
     Active Substance: ATEZOLIZUMAB
     Indication: Non-small cell lung cancer metastatic
     Dosage: DATE OF MOST RECENT DOSE OF BLINDED ATEZOLIZUMAB PRIOR TO AE/SAE ONSET: 02/AUG/2021.
     Dates: start: 20210802
  32. IODINE [Concomitant]
     Active Substance: IODINE
     Indication: Iodine deficiency
     Dosage: 100UG
     Dates: start: 20210921

REACTIONS (1)
  - Peritonitis [Recovered/Resolved]

NARRATIVE: CASE EVENT DATE: 20210821
